FAERS Safety Report 8167488-4 (Version None)
Quarter: 2012Q1

REPORT INFORMATION
  Report Type: 
  Country: None (occurrence: None)
  Receive Date: 20120103
  Receipt Date: 20111009
  Transmission Date: 20120608
  Serious: No
  Sender: FDA-Public Use
  Company Number: AE-2011-002152

PATIENT
  Age: 43 Year
  Sex: Male
  Weight: 99.7913 kg

DRUGS (3)
  1. PEGINTERFERON (PEGINTERFERON ALFA-2A) [Concomitant]
  2. INCIVEK [Suspect]
     Dosage: (3 IN 1 D), ORAL
     Route: 048
     Dates: start: 20110923
  3. RIBAVIRIN [Concomitant]

REACTIONS (5)
  - BACK PAIN [None]
  - DIARRHOEA [None]
  - CONSTIPATION [None]
  - POLLAKIURIA [None]
  - BURNING SENSATION [None]
